FAERS Safety Report 15007339 (Version 2)
Quarter: 2021Q2

REPORT INFORMATION
  Report Type: Report from Study
  Country: None (occurrence: US)
  Receive Date: 20180613
  Receipt Date: 20210407
  Transmission Date: 20210716
  Serious: Yes (Other)
  Sender: FDA-Public Use
  Company Number: US-B.I. PHARMACEUTICALS,INC./RIDGEFIELD-2018-BI-029645

PATIENT

DRUGS (4)
  1. GILOTRIF [Suspect]
     Active Substance: AFATINIB
     Indication: EGFR GENE MUTATION
  2. CISPLATIN W/PEMETREXED [Concomitant]
     Active Substance: CISPLATIN\PEMETREXED
     Indication: NON-SMALL CELL LUNG CANCER STAGE III
     Dosage: 1 DF ONCE EVERY 3 WEEKS UP TO 4 CYCLES
     Route: 042
  3. GILOTRIF [Suspect]
     Active Substance: AFATINIB
     Indication: NON-SMALL CELL LUNG CANCER STAGE III
     Route: 048
  4. CISPLATIN W/PEMETREXED [Concomitant]
     Active Substance: CISPLATIN\PEMETREXED
     Indication: EGFR GENE MUTATION

REACTIONS (1)
  - Febrile neutropenia [Unknown]
